FAERS Safety Report 9538297 (Version 4)
Quarter: 2013Q4

REPORT INFORMATION
  Report Type: Spontaneous
  Country: ES (occurrence: ES)
  Receive Date: 20130920
  Receipt Date: 20131028
  Transmission Date: 20140711
  Serious: Yes (Other)
  Sender: FDA-Public Use
  Company Number: ES-RANBAXY-2013RR-73248

PATIENT
  Age: 24 Year
  Sex: Female

DRUGS (2)
  1. AMOXICILINA/ACIDO CLAVULANICO RANBAXY 500/125 MG COMPRIMIDOS EFG [Suspect]
     Indication: PRODUCT USED FOR UNKNOWN INDICATION
     Dosage: 1 DF, TID
     Route: 048
     Dates: start: 20121202, end: 20121203
  2. IBUPROFEN [Suspect]
     Indication: PRODUCT USED FOR UNKNOWN INDICATION
     Dosage: 600 MG, QID
     Route: 048
     Dates: start: 20121202, end: 20121203

REACTIONS (2)
  - Dyspnoea [Unknown]
  - Urticaria [Unknown]
